FAERS Safety Report 6147598-3 (Version None)
Quarter: 2009Q2

REPORT INFORMATION
  Report Type: 
  Country: None (occurrence: None)
  Receive Date: 20090408
  Receipt Date: 20090330
  Transmission Date: 20091009
  Serious: Yes (Hospitalization)
  Sender: FDA-Public Use
  Company Number: FR-ASTRAZENECA-2009CG00600

PATIENT
  Age: 7842 Day
  Sex: Female

DRUGS (7)
  1. NAROPEINE [Suspect]
     Indication: SPINAL ANAESTHESIA
     Route: 008
     Dates: start: 20090221, end: 20090221
  2. XYLOCAINE W/ EPINEPHRINE [Suspect]
     Indication: SPINAL ANAESTHESIA
     Route: 008
     Dates: start: 20090221, end: 20090221
  3. DAFALGAN [Suspect]
     Route: 048
     Dates: start: 20090221, end: 20090225
  4. SPASFON LYOC [Suspect]
     Route: 048
     Dates: start: 20090220, end: 20090220
  5. SPASFON LYOC [Suspect]
     Route: 048
     Dates: start: 20090221, end: 20090221
  6. SPASFON LYOC [Suspect]
     Route: 048
     Dates: start: 20090224, end: 20090225
  7. SUFENTA PRESERVATIVE FREE [Suspect]
     Indication: SPINAL ANAESTHESIA
     Route: 008
     Dates: start: 20090221, end: 20090221

REACTIONS (1)
  - ACUTE GENERALISED EXANTHEMATOUS PUSTULOSIS [None]
